FAERS Safety Report 17409969 (Version 1)
Quarter: 2020Q1

REPORT INFORMATION
  Report Type: Spontaneous
  Country: CH (occurrence: CH)
  Receive Date: 20200212
  Receipt Date: 20200212
  Transmission Date: 20200409
  Serious: Yes (Life-Threatening)
  Sender: FDA-Public Use
  Company Number: CH-SA-2018SA158906

PATIENT
  Age: 33 Year
  Sex: Female

DRUGS (15)
  1. FLAGYL [Suspect]
     Active Substance: METRONIDAZOLE\METRONIDAZOLE HYDROCHLORIDE
     Dosage: UNK
     Route: 048
     Dates: start: 20180601, end: 20180608
  2. ZOLPIDEM TARTRATE. [Suspect]
     Active Substance: ZOLPIDEM TARTRATE
     Indication: HALLUCINATION, AUDITORY
     Dosage: 10 MG, QH
     Route: 048
  3. ATRIPLA [Concomitant]
     Active Substance: EFAVIRENZ\EMTRICITABINE\TENOFOVIR DISOPROXIL FUMARATE
     Dosage: UNK
     Dates: start: 2017, end: 201802
  4. ISENTRESS [Concomitant]
     Active Substance: RALTEGRAVIR POTASSIUM
     Dosage: UNK
     Dates: start: 20180601
  5. LORAZEPAM. [Suspect]
     Active Substance: LORAZEPAM
     Dosage: 7.5 MG, QD
     Route: 048
     Dates: start: 20180522, end: 20180627
  6. PRAZINE [PROMAZINE HYDROCHLORIDE] [Suspect]
     Active Substance: PROMAZINE HYDROCHLORIDE
     Dosage: MAX 3X / D, RECEIVED 4X ON THE 24.05
     Route: 048
     Dates: start: 20180523
  7. QUETIAPINE FUMARATE. [Suspect]
     Active Substance: QUETIAPINE FUMARATE
     Indication: HALLUCINATION, AUDITORY
     Dosage: DOSE VARIATION BETWEEN 50 AND 100 MG/D.XSTART OF ADMINISTRATION UNKNOWN
     Route: 048
  8. PASPERTIN [METOCLOPRAMIDE HYDROCHLORIDE] [Concomitant]
     Active Substance: METOCLOPRAMIDE HYDROCHLORIDE
     Dosage: UNK
     Dates: start: 20180521
  9. TRIUMEQ [Suspect]
     Active Substance: ABACAVIR SULFATE\DOLUTEGRAVIR SODIUM\LAMIVUDINE
     Indication: HIV INFECTION
     Dosage: 1 DF, QD
     Route: 048
     Dates: start: 201802, end: 20180601
  10. DESCOVY [Concomitant]
     Active Substance: EMTRICITABINE\TENOFOVIR ALAFENAMIDE FUMARATE
     Dosage: UNK
     Dates: start: 20180601
  11. PLUS KALIUM [Concomitant]
     Active Substance: POTASSIUM CHLORIDE
     Dosage: UNK
     Dates: start: 20180524, end: 20180527
  12. RISPERIDONE. [Suspect]
     Active Substance: RISPERIDONE
     Dosage: 1X/D UNTIL 25.05
     Route: 048
     Dates: start: 20180523
  13. RISPERIDONE. [Suspect]
     Active Substance: RISPERIDONE
     Dosage: 1X/D UNTIL 25.05
     Route: 048
     Dates: start: 20180523, end: 20180529
  14. NITROFURANTOIN. [Suspect]
     Active Substance: NITROFURANTOIN
     Indication: CYSTITIS
     Dosage: 200 MG, QD
     Route: 048
     Dates: start: 20180521, end: 20180525
  15. FLAGYL [Suspect]
     Active Substance: METRONIDAZOLE\METRONIDAZOLE HYDROCHLORIDE
     Indication: BACTERIAL VAGINOSIS
     Dosage: 1000 MG, QD
     Route: 048
     Dates: start: 20180521, end: 20180527

REACTIONS (1)
  - Atrioventricular block second degree [Recovered/Resolved]

NARRATIVE: CASE EVENT DATE: 20180525
